FAERS Safety Report 8210441-2 (Version None)
Quarter: 2012Q1

REPORT INFORMATION
  Report Type: 
  Country: None (occurrence: None)
  Receive Date: 20120314
  Receipt Date: 20110713
  Transmission Date: 20120608
  Serious: No
  Sender: FDA-Public Use
  Company Number: US-ASTRAZENECA-2011SE42249

PATIENT
  Age: 55 Year
  Sex: Male

DRUGS (9)
  1. BENICAR HCT [Concomitant]
     Indication: HYPERTENSION
  2. RESTORIL [Concomitant]
     Indication: SLEEP DISORDER
  3. DEPAKOTE ER [Concomitant]
  4. LODINE [Concomitant]
     Indication: OSTEOARTHRITIS
  5. MULTI-VITAMIN [Concomitant]
  6. CYMBALTA [Concomitant]
  7. LORTAB [Concomitant]
     Indication: PAIN
  8. TOPROL-XL [Suspect]
     Indication: HYPERTENSION
     Route: 048
     Dates: start: 20110606
  9. ACTOS [Concomitant]

REACTIONS (9)
  - HEPATIC STEATOSIS [None]
  - INSOMNIA [None]
  - BIPOLAR I DISORDER [None]
  - ANAEMIA [None]
  - FATIGUE [None]
  - OSTEOARTHRITIS [None]
  - ESSENTIAL HYPERTENSION [None]
  - ARTHRALGIA [None]
  - BLOOD CHOLESTEROL INCREASED [None]
